FAERS Safety Report 8268870-7 (Version None)
Quarter: 2012Q2

REPORT INFORMATION
  Report Type: 
  Country: None (occurrence: None)
  Receive Date: 20120409
  Receipt Date: 20120329
  Transmission Date: 20120825
  Serious: Yes (Other)
  Sender: FDA-Public Use
  Company Number: US-ASTRAZENECA-2012SE20965

PATIENT
  Age: 64 Year
  Sex: Female

DRUGS (10)
  1. ASPIRIN [Concomitant]
  2. CRESTOR [Suspect]
     Route: 048
     Dates: start: 20120314
  3. CELEXA [Concomitant]
  4. CRESTOR [Suspect]
     Indication: BLOOD CHOLESTEROL INCREASED
     Route: 048
  5. MULTI-VITAMIN [Concomitant]
  6. TRILEPTAL [Concomitant]
  7. FISH OIL [Concomitant]
  8. PLAVIX [Concomitant]
  9. ISOSORBIDE DINITRATE [Concomitant]
  10. CALCIUM CARBONATE [Concomitant]

REACTIONS (1)
  - SALIVARY GLAND CANCER [None]
